FAERS Safety Report 24809132 (Version 1)
Quarter: 2025Q1

REPORT INFORMATION
  Report Type: Spontaneous
  Country: IT (occurrence: IT)
  Receive Date: 20250106
  Receipt Date: 20250106
  Transmission Date: 20250408
  Serious: Yes (Hospitalization)
  Sender: MACLEODS
  Company Number: IT-GLAXOSMITHKLINE-IT2024GSK057066

PATIENT

DRUGS (3)
  1. OLANZAPINE [Suspect]
     Active Substance: OLANZAPINE
     Indication: Bipolar disorder
     Route: 065
  2. LITHIUM [Suspect]
     Active Substance: LITHIUM
     Indication: Bipolar disorder
     Route: 065
  3. PAROXETINE [Concomitant]
     Active Substance: PAROXETINE
     Indication: Bipolar disorder
     Route: 065

REACTIONS (6)
  - Encephalopathy [Recovering/Resolving]
  - Head injury [Unknown]
  - Fall [Unknown]
  - Pneumonia [Recovered/Resolved]
  - Hypernatraemia [Recovered/Resolved]
  - Neurotoxicity [Recovering/Resolving]
